FAERS Safety Report 14456193 (Version 2)
Quarter: 2018Q1

REPORT INFORMATION
  Report Type: Spontaneous
  Country: GR (occurrence: GR)
  Receive Date: 20180130
  Receipt Date: 20180131
  Transmission Date: 20180509
  Serious: Yes (Hospitalization, Other)
  Sender: FDA-Public Use
  Company Number: GR-009507513-1801GRC013225

PATIENT
  Age: 29 Year
  Sex: Female

DRUGS (1)
  1. KEYTRUDA [Suspect]
     Active Substance: PEMBROLIZUMAB
     Indication: THYMOMA
     Route: 042

REACTIONS (7)
  - Myocarditis [Unknown]
  - Ophthalmoplegia [Unknown]
  - Respiratory failure [Unknown]
  - Myasthenia gravis [Unknown]
  - Product use in unapproved indication [Unknown]
  - Myositis [Unknown]
  - Respiratory disorder [Unknown]
